FAERS Safety Report 5261809-8 (Version None)
Quarter: 2007Q1

REPORT INFORMATION
  Report Type: 
  Country: None (occurrence: None)
  Receive Date: 20070310
  Receipt Date: 20070228
  Transmission Date: 20070707
  Serious: No
  Sender: FDA-Public Use
  Company Number: 2006UW11094

PATIENT
  Age: 53 Year
  Sex: Male
  Weight: 86.4 kg

DRUGS (7)
  1. SEROQUEL [Suspect]
     Indication: BIPOLAR DISORDER
     Route: 048
     Dates: start: 19970101
  2. SEROQUEL [Suspect]
     Indication: SCHIZOPHRENIA
     Route: 048
     Dates: start: 19970101
  3. RISPERDAL [Concomitant]
     Dates: start: 19940101
  4. OTHER PSYCHIATRIC MEDICATION [Concomitant]
  5. MARIJUANA [Concomitant]
     Dates: start: 19800101, end: 19940101
  6. COCAINE [Concomitant]
     Dates: start: 19800101, end: 19940101
  7. CITALOPRAM HYDROBROMINE [Concomitant]
     Indication: DEPRESSION

REACTIONS (1)
  - DIABETES MELLITUS [None]
